FAERS Safety Report 24635586 (Version 3)
Quarter: 2025Q3

REPORT INFORMATION
  Report Type: Spontaneous
  Country: US (occurrence: US)
  Receive Date: 20241119
  Receipt Date: 20250820
  Transmission Date: 20251020
  Serious: No
  Sender: CATALYST PHARMA
  Company Number: US-CATALYST PHARMACEUTICALS-US-CATA-24-00824

PATIENT
  Age: 9 Year
  Sex: Male
  Weight: 36.29 kg

DRUGS (9)
  1. AGAMREE [Suspect]
     Active Substance: VAMOROLONE
     Indication: Duchenne muscular dystrophy
     Dosage: 4.5 ML PER DAY
     Route: 048
     Dates: start: 20240418
  2. FLUOXETINE [Concomitant]
     Active Substance: FLUOXETINE HYDROCHLORIDE
     Indication: Product used for unknown indication
     Dosage: 2 ML DAILY
     Route: 065
  3. VITAMIN D3 GUMMIES [Concomitant]
     Indication: Product used for unknown indication
     Dosage: 2000 IU DAILY
     Route: 065
  4. AMONDYS 45 [Concomitant]
     Active Substance: CASIMERSEN
     Indication: Product used for unknown indication
     Dosage: 100MG-2ML WEEKLY
     Route: 042
  5. CHILDREN^S MULTIVITAMIN [Concomitant]
     Indication: Product used for unknown indication
     Dosage: ONE TABLET DAILY
     Route: 065
  6. MELATONIN KIDS [Concomitant]
     Indication: Product used for unknown indication
     Dosage: 2MG AT NIGHT
     Route: 065
  7. COENZYME Q10 [Concomitant]
     Active Substance: DIETARY SUPPLEMENT\UBIDECARENONE
     Indication: Product used for unknown indication
     Dosage: 100 MG DAILY
     Route: 065
  8. LOSARTAN [Concomitant]
     Active Substance: LOSARTAN
     Indication: Product used for unknown indication
     Dosage: 25 MG DAILY
     Route: 065
  9. EDG-5506 [Concomitant]
     Active Substance: EDG-5506
     Indication: Product used for unknown indication
     Dosage: 1 DOSE DAILY
     Route: 065

REACTIONS (1)
  - Weight increased [Not Recovered/Not Resolved]

NARRATIVE: CASE EVENT DATE: 20240401
